FAERS Safety Report 14954061 (Version 2)
Quarter: 2018Q2

REPORT INFORMATION
  Report Type: Spontaneous
  Country: US (occurrence: US)
  Receive Date: 20180530
  Receipt Date: 20180612
  Transmission Date: 20180711
  Serious: No
  Sender: FDA-Public Use
  Company Number: US-SHIRE-US201820477

PATIENT

DRUGS (1)
  1. VYVANSE [Suspect]
     Active Substance: LISDEXAMFETAMINE DIMESYLATE
     Indication: OFF LABEL USE
     Dosage: 50 MG, UNK
     Route: 065

REACTIONS (4)
  - Anxiety [Unknown]
  - Off label use [Unknown]
  - Product packaging quantity issue [Unknown]
  - Product physical issue [Unknown]
